FAERS Safety Report 8986537 (Version 4)
Quarter: 2013Q3

REPORT INFORMATION
  Report Type: Report from Study
  Country: GB (occurrence: GB)
  Receive Date: 20121226
  Receipt Date: 20130813
  Transmission Date: 20140515
  Serious: Yes (Hospitalization)
  Sender: FDA-Public Use
  Company Number: GB-ROCHE-1170963

PATIENT
  Age: 65 Year
  Sex: Male
  Weight: 75.8 kg

DRUGS (2)
  1. BEVACIZUMAB [Suspect]
     Indication: COLON CANCER
     Route: 042
     Dates: start: 20120706, end: 20121102
  2. CAPECITABINE [Concomitant]
     Indication: NEOPLASM MALIGNANT
     Route: 048
     Dates: start: 20121210, end: 20121215

REACTIONS (3)
  - Diarrhoea [Recovered/Resolved]
  - Diarrhoea [Recovered/Resolved]
  - Pyrexia [Unknown]
